FAERS Safety Report 9003700 (Version 1)
Quarter: 2013Q1

REPORT INFORMATION
  Report Type: Spontaneous
  Country: US (occurrence: US)
  Receive Date: 20130108
  Receipt Date: 20130108
  Transmission Date: 20140127
  Serious: No
  Sender: FDA-Public Use
  Company Number: US-GLAXOSMITHKLINE-A0963192A

PATIENT
  Sex: Male

DRUGS (4)
  1. LOVAZA [Suspect]
     Indication: MACULAR DEGENERATION
     Dosage: 1G PER DAY
     Route: 048
     Dates: start: 201112, end: 201201
  2. CYMBALTA [Suspect]
     Route: 065
  3. ALLOPURINOL [Suspect]
     Route: 065
  4. LYRICA [Concomitant]

REACTIONS (2)
  - Dysgeusia [Not Recovered/Not Resolved]
  - Off label use [Unknown]
